FAERS Safety Report 16638076 (Version 2)
Quarter: 2019Q3

REPORT INFORMATION
  Report Type: Spontaneous
  Country: RO (occurrence: RO)
  Receive Date: 20190726
  Receipt Date: 20190803
  Transmission Date: 20191004
  Serious: Yes (Other)
  Sender: FDA-Public Use
  Company Number: PHHY2019RO173429

PATIENT
  Age: 51 Year
  Sex: Female

DRUGS (2)
  1. SIMPONI [Suspect]
     Active Substance: GOLIMUMAB
     Indication: PSORIATIC ARTHROPATHY
     Dosage: 50 MG, QMO
     Route: 058
     Dates: start: 201707, end: 201905
  2. METHOTREXATE. [Suspect]
     Active Substance: METHOTREXATE
     Indication: PSORIATIC ARTHROPATHY
     Dosage: 10 MG, UNK
     Route: 065

REACTIONS (1)
  - Thymoma [Unknown]

NARRATIVE: CASE EVENT DATE: 201906
